FAERS Safety Report 21729395 (Version 1)
Quarter: 2022Q4

REPORT INFORMATION
  Report Type: Report from Study
  Country: RU (occurrence: RU)
  Receive Date: 20221214
  Receipt Date: 20221214
  Transmission Date: 20230113
  Serious: Yes (Other)
  Sender: FDA-Public Use
  Company Number: RU-JNJFOC-20221216650

PATIENT
  Age: 26 Year
  Sex: Female
  Weight: 52 kg

DRUGS (3)
  1. ERDAFITINIB [Suspect]
     Active Substance: ERDAFITINIB
     Indication: Adenocarcinoma
     Route: 048
     Dates: start: 20221109, end: 20221201
  2. TORSEMIDE [Concomitant]
     Active Substance: TORSEMIDE
     Indication: Ascites
     Route: 048
     Dates: start: 20221110, end: 20221124
  3. SPIRONOLACTONE [Concomitant]
     Active Substance: SPIRONOLACTONE
     Indication: Ascites
     Route: 048
     Dates: start: 20221110, end: 20221124

REACTIONS (1)
  - Blood bilirubin increased [Not Recovered/Not Resolved]

NARRATIVE: CASE EVENT DATE: 20221201
